FAERS Safety Report 16024561 (Version 1)
Quarter: 2019Q1

REPORT INFORMATION
  Report Type: Spontaneous
  Country: AT (occurrence: AT)
  Receive Date: 20190301
  Receipt Date: 20190301
  Transmission Date: 20190418
  Serious: Yes (Other)
  Sender: FDA-Public Use
  Company Number: AT-PFIZER INC-2019053078

PATIENT
  Age: 68 Year
  Sex: Male
  Weight: 92 kg

DRUGS (5)
  1. ATORVASTATIN CALCIUM. [Suspect]
     Active Substance: ATORVASTATIN CALCIUM
     Dosage: 20 MG, UNK
     Dates: start: 20181205, end: 20190203
  2. INVOKANA [Concomitant]
     Active Substance: CANAGLIFLOZIN
     Dosage: 10 MG, 1X/DAY (0-0-1-0)
  3. VICTOZA [Concomitant]
     Active Substance: LIRAGLUTIDE
     Dosage: 1.2 UG, 1X/DAY (1-0-0-0)
  4. CO DIOVAN FORTE [Concomitant]
     Dosage: UNK, 1X/DAY (1-0-0-0)
  5. DIAMICRON MR [Concomitant]
     Active Substance: GLICLAZIDE
     Dosage: UNK (30, 2X/DAY (1-0-1-0))

REACTIONS (3)
  - Myalgia [Recovered/Resolved]
  - Chest injury [Recovered/Resolved]
  - Fall [Unknown]

NARRATIVE: CASE EVENT DATE: 2019
